FAERS Safety Report 14076810 (Version 4)
Quarter: 2018Q1

REPORT INFORMATION
  Report Type: Spontaneous
  Country: US (occurrence: US)
  Receive Date: 20171011
  Receipt Date: 20180307
  Transmission Date: 20180508
  Serious: Yes (Hospitalization)
  Sender: FDA-Public Use
  Company Number: PHEH2017US032687

PATIENT
  Sex: Male
  Weight: 94.14 kg

DRUGS (20)
  1. PREDNISONE. [Concomitant]
     Active Substance: PREDNISONE
     Indication: PRODUCT USED FOR UNKNOWN INDICATION
     Route: 065
  2. TORSEMIDE. [Concomitant]
     Active Substance: TORSEMIDE
     Indication: PRODUCT USED FOR UNKNOWN INDICATION
     Route: 065
  3. PRINIVIL [Concomitant]
     Active Substance: LISINOPRIL
     Indication: PRODUCT USED FOR UNKNOWN INDICATION
     Dosage: 0.5 DF, QD
     Route: 065
  4. PLAVIX [Concomitant]
     Active Substance: CLOPIDOGREL BISULFATE
     Indication: VASCULAR STENT THROMBOSIS
     Dosage: 1 DF, QD
     Route: 048
  5. NOVOLOG [Concomitant]
     Active Substance: INSULIN ASPART
     Indication: PRODUCT USED FOR UNKNOWN INDICATION
     Route: 065
  6. DECADRON [Concomitant]
     Active Substance: DEXAMETHASONE
     Indication: APPETITE DISORDER
     Dosage: 1 DF, QD (EVERY MORNING WITH BREAKFAST)
     Route: 048
     Dates: start: 20171010
  7. LIPITOR [Concomitant]
     Active Substance: ATORVASTATIN CALCIUM
     Indication: BLOOD CHOLESTEROL
     Dosage: 40 MG, QD
     Route: 048
  8. REMERON [Concomitant]
     Active Substance: MIRTAZAPINE
     Indication: DEPRESSION
     Dosage: 1 DF, QHS (EVERY NIGHT AT BEDTIME)
     Route: 048
  9. TOUJEO [Concomitant]
     Active Substance: INSULIN GLARGINE
     Indication: PRODUCT USED FOR UNKNOWN INDICATION
     Route: 065
  10. IRON [Concomitant]
     Active Substance: IRON
     Indication: PRODUCT USED FOR UNKNOWN INDICATION
     Dosage: 18 MG, QD
     Route: 048
  11. ZOFRAN [Concomitant]
     Active Substance: ONDANSETRON HYDROCHLORIDE
     Indication: PRODUCT USED FOR UNKNOWN INDICATION
     Dosage: 1 DF, Q6H (ON AN EMPTY STOMACH)
     Route: 048
  12. VOTRIENT [Suspect]
     Active Substance: PAZOPANIB HYDROCHLORIDE
     Indication: RENAL CANCER
     Dosage: 4 DF, QD (TAKE AT LEAST 1 HR BEFORE OR 2 HR AFTER))
     Route: 065
     Dates: start: 20170926
  13. CHOLECALCIFEROL [Concomitant]
     Active Substance: CHOLECALCIFEROL
     Indication: PRODUCT USED FOR UNKNOWN INDICATION
     Dosage: 1000 U, UNK
     Route: 048
  14. LEXAPRO [Concomitant]
     Active Substance: ESCITALOPRAM OXALATE
     Indication: PRODUCT USED FOR UNKNOWN INDICATION
     Dosage: 1 DF, QD
     Route: 048
  15. NORVASC [Concomitant]
     Active Substance: AMLODIPINE BESYLATE
     Indication: HYPERTENSION
     Dosage: 5 MG, QD
     Route: 065
  16. NEURONTIN [Concomitant]
     Active Substance: GABAPENTIN
     Indication: PRODUCT USED FOR UNKNOWN INDICATION
     Route: 065
  17. GLIPIZIDE. [Concomitant]
     Active Substance: GLIPIZIDE
     Indication: PRODUCT USED FOR UNKNOWN INDICATION
     Route: 065
  18. LORAZEPAM. [Concomitant]
     Active Substance: LORAZEPAM
  19. COREG [Concomitant]
     Active Substance: CARVEDILOL
     Indication: PRODUCT USED FOR UNKNOWN INDICATION
     Dosage: 1 DF, BID
     Route: 048
  20. CILOXAN [Concomitant]
     Active Substance: CIPROFLOXACIN HYDROCHLORIDE
     Indication: PRODUCT USED FOR UNKNOWN INDICATION
     Dosage: UNK %, UNK
     Route: 065

REACTIONS (11)
  - Mean cell haemoglobin concentration decreased [Unknown]
  - Red cell distribution width increased [Unknown]
  - Protein total decreased [Unknown]
  - Blood bilirubin decreased [Unknown]
  - Carbon dioxide increased [Unknown]
  - Haemoglobin decreased [Unknown]
  - Diarrhoea [Not Recovered/Not Resolved]
  - Blood albumin decreased [Unknown]
  - Anion gap decreased [Unknown]
  - Blood glucose increased [Unknown]
  - Erythema [Unknown]
